FAERS Safety Report 9187280 (Version 1)
Quarter: 2013Q1

REPORT INFORMATION
  Report Type: Spontaneous
  Country: US (occurrence: US)
  Receive Date: 20130325
  Receipt Date: 20130325
  Transmission Date: 20140127
  Serious: No
  Sender: FDA-Public Use
  Company Number: US-JNJFOC-20130312959

PATIENT
  Age: 48 Year
  Sex: Male
  Weight: 68.04 kg

DRUGS (5)
  1. SANDOZ FENTANYL TRANSDERMAL SYSTEM [Suspect]
     Indication: ARTHRALGIA
     Route: 062
     Dates: start: 201303
  2. CELEBREX [Concomitant]
     Indication: MUSCLE SPASMS
     Route: 048
     Dates: start: 20130304
  3. CELEBREX [Concomitant]
     Indication: PAIN
     Route: 048
     Dates: start: 20130304
  4. CYCLOBENZAPRINE [Concomitant]
     Indication: PAIN
     Route: 048
     Dates: start: 20130304
  5. TRAMADOL [Concomitant]
     Indication: PAIN
     Route: 048
     Dates: start: 20130304

REACTIONS (1)
  - Drug dispensing error [Unknown]
